FAERS Safety Report 13603012 (Version 2)
Quarter: 2017Q3

REPORT INFORMATION
  Report Type: Report from Study
  Country: DE (occurrence: DE)
  Receive Date: 20170601
  Receipt Date: 20170714
  Transmission Date: 20171127
  Serious: Yes (Hospitalization)
  Sender: FDA-Public Use
  Company Number: DE-BRISTOL-MYERS SQUIBB COMPANY-BMS-2017-046945

PATIENT
  Age: 81 Year
  Sex: Male

DRUGS (1)
  1. APIXABAN [Suspect]
     Active Substance: APIXABAN
     Indication: CEREBROVASCULAR ACCIDENT PROPHYLAXIS
     Dosage: 5 MG, BID
     Route: 048

REACTIONS (4)
  - Musculoskeletal pain [Unknown]
  - Humerus fracture [Recovered/Resolved]
  - Fall [Unknown]
  - Surgery [Unknown]

NARRATIVE: CASE EVENT DATE: 201701
